FAERS Safety Report 5757611-0 (Version None)
Quarter: 2008Q2

REPORT INFORMATION
  Report Type: 
  Country: None (occurrence: None)
  Receive Date: 20080603
  Receipt Date: 20080522
  Transmission Date: 20081010
  Serious: Yes (Disabling, Other)
  Sender: FDA-Public Use
  Company Number: CA-PFIZER INC-2008032353

PATIENT
  Sex: Female

DRUGS (8)
  1. LYRICA [Suspect]
     Indication: BACK PAIN
     Route: 048
     Dates: start: 20071211, end: 20080316
  2. LYRICA [Suspect]
     Indication: SCIATICA
  3. ENDOCET [Concomitant]
     Indication: PAIN
  4. ALL OTHER THERAPEUTIC PRODUCTS [Concomitant]
     Indication: THYROID DISORDER
  5. SYNTHROID [Concomitant]
  6. ADVIL [Concomitant]
  7. VITAMIN E [Concomitant]
  8. MARCAINE [Concomitant]

REACTIONS (3)
  - FATIGUE [None]
  - HEPATITIS [None]
  - JAUNDICE [None]
